FAERS Safety Report 19004892 (Version 1)
Quarter: 2021Q1

REPORT INFORMATION
  Report Type: Spontaneous
  Country: US (occurrence: US)
  Receive Date: 20210313
  Receipt Date: 20210313
  Transmission Date: 20210420
  Serious: No
  Sender: FDA-Public Use
  Company Number: US-JNJFOC-20210307473

PATIENT
  Age: 21 Year
  Sex: Male
  Weight: 54.48 kg

DRUGS (2)
  1. MENS ROGAINE EXTRA STRENGTH [Suspect]
     Active Substance: MINOXIDIL
     Dosage: A LITTLE BIT FROM THE PALM OF HAND TWICE A DAY
     Route: 061
  2. MENS ROGAINE EXTRA STRENGTH [Suspect]
     Active Substance: MINOXIDIL
     Indication: ALOPECIA
     Dosage: A LITTLE BIT, JUST PUT SOME INTO THE PALM OF HAND AND PUT IT ON THE TOP OF HEAD, THE PATIENT LAST US
     Route: 061

REACTIONS (3)
  - Expired product administered [Unknown]
  - Wrong technique in product usage process [Unknown]
  - Incorrect dose administered [Unknown]
